FAERS Safety Report 4281863-X (Version None)
Quarter: 2004Q1

REPORT INFORMATION
  Report Type: 
  Country: None (occurrence: None)
  Receive Date: 20040108
  Receipt Date: 20021120
  Transmission Date: 20041129
  Serious: Yes (Hospitalization, Other)
  Sender: FDA-Public Use
  Company Number: HQ4966131OCT2002

PATIENT
  Age: 56 Year
  Sex: Female
  Weight: 69.92 kg

DRUGS (1)
  1. PREMPRO [Suspect]
     Indication: HORMONE REPLACEMENT THERAPY
     Dosage: 0.625/2.5 MG DAILY, ORAL
     Route: 048
     Dates: start: 19991004, end: 20000804

REACTIONS (1)
  - CEREBROVASCULAR ACCIDENT [None]
